FAERS Safety Report 5288893-X (Version None)
Quarter: 2007Q1

REPORT INFORMATION
  Report Type: 
  Country: None (occurrence: None)
  Receive Date: 20070118
  Receipt Date: 20060929
  Transmission Date: 20070707
  Serious: Yes (Other)
  Sender: FDA-Public Use
  Company Number: HQWYE428102OCT06

PATIENT
  Age: 83 Year
  Sex: Female
  Weight: 63.56 kg

DRUGS (3)
  1. ADVIL PM [Suspect]
     Indication: ARTHRALGIA
     Dosage: 2 CAPLETS ONCE, ORAL
     Route: 048
     Dates: start: 20060928, end: 20060928
  2. ADVIL PM [Suspect]
     Indication: INSOMNIA
     Dosage: 2 CAPLETS ONCE, ORAL
     Route: 048
     Dates: start: 20060928, end: 20060928
  3. UNSPECIFIED ANTIHYPERTENSIVE AGENT (UNSPECIFIED ANTIHYPERTENSIVE AGENT [Concomitant]

REACTIONS (1)
  - DRUG INEFFECTIVE [None]
